FAERS Safety Report 7806723-6 (Version None)
Quarter: 2011Q4

REPORT INFORMATION
  Report Type: 
  Country: None (occurrence: None)
  Receive Date: 20111011
  Receipt Date: 20110929
  Transmission Date: 20120403
  Serious: Yes (Other)
  Sender: FDA-Public Use
  Company Number: PHHY2011AR82199

PATIENT
  Sex: Male

DRUGS (2)
  1. RASILEZ [Suspect]
     Indication: BLOOD PRESSURE
     Dosage: 300 MG, QD
  2. RASILEZ [Suspect]
     Dosage: 150 MG, QD

REACTIONS (11)
  - BRADYCARDIA [None]
  - EMOTIONAL DISORDER [None]
  - BILE DUCT OBSTRUCTION [None]
  - DEFICIENCY OF BILE SECRETION [None]
  - BLOOD PRESSURE FLUCTUATION [None]
  - JAUNDICE [None]
  - CHROMATURIA [None]
  - SKIN DISCOLOURATION [None]
  - CHEST PAIN [None]
  - PRURITUS [None]
  - ABDOMINAL PAIN [None]
